FAERS Safety Report 9184785 (Version 1)
Quarter: 2013Q1

REPORT INFORMATION
  Report Type: Spontaneous
  Country: US (occurrence: US)
  Receive Date: 20130325
  Receipt Date: 20130325
  Transmission Date: 20140127
  Serious: Yes (Other)
  Sender: FDA-Public Use
  Company Number: US-ROXANE LABORATORIES, INC.-2013-RO-00398RO

PATIENT
  Age: 43 Year
  Sex: Male

DRUGS (3)
  1. PREDNISONE [Suspect]
     Indication: CUTANEOUS SARCOIDOSIS
  2. HYDROXYCHLOROQUINE [Suspect]
     Indication: CUTANEOUS SARCOIDOSIS
  3. CORTICOSTEROIDS [Suspect]
     Indication: CUTANEOUS SARCOIDOSIS

REACTIONS (5)
  - Treatment failure [Recovered/Resolved]
  - Abnormal weight gain [Unknown]
  - Hypertension [Unknown]
  - Diabetes mellitus [Unknown]
  - Pathological fracture [Unknown]
